FAERS Safety Report 5001335-4 (Version None)
Quarter: 2006Q2

REPORT INFORMATION
  Report Type: 
  Country: None (occurrence: None)
  Receive Date: 20060512
  Receipt Date: 20040720
  Transmission Date: 20061013
  Serious: Yes (Hospitalization, Disabling, Other)
  Sender: FDA-Public Use
  Company Number: US-MERCK-0407USA01743

PATIENT
  Age: 51 Year
  Sex: Female
  Weight: 105 kg

DRUGS (10)
  1. VIOXX [Suspect]
     Indication: PAIN
     Route: 048
     Dates: start: 19991005, end: 19991201
  2. VIOXX [Suspect]
     Indication: BACK DISORDER
     Route: 048
     Dates: start: 19991005, end: 19991201
  3. PREMARIN [Concomitant]
     Route: 048
  4. ZOCOR [Concomitant]
     Route: 065
  5. VOLTAREN [Concomitant]
     Route: 048
  6. FLEXERIL [Concomitant]
     Route: 048
  7. GUAIFENESIN AND PSEUDOEPHEDRINE HYDROCHLORIDE [Concomitant]
     Route: 048
  8. AMOXICILLIN [Concomitant]
     Route: 065
  9. PRAVACHOL [Concomitant]
     Route: 065
  10. LOPID [Concomitant]
     Route: 048

REACTIONS (39)
  - ANGINA PECTORIS [None]
  - ANXIETY [None]
  - ARTERIAL STENOSIS [None]
  - ARTERIOSCLEROSIS [None]
  - ARTHRALGIA [None]
  - ATELECTASIS [None]
  - BACK PAIN [None]
  - BLADDER NEOPLASM [None]
  - BREAST DISORDER FEMALE [None]
  - BUTTOCK PAIN [None]
  - CARDIAC DISORDER [None]
  - CARDIAC FAILURE CONGESTIVE [None]
  - CARDIOMYOPATHY [None]
  - CHEST PAIN [None]
  - CORNEAL ABRASION [None]
  - CORONARY ARTERY DISEASE [None]
  - DEPRESSION [None]
  - DIARRHOEA [None]
  - DYSPEPSIA [None]
  - DYSPHONIA [None]
  - GASTRITIS [None]
  - GASTROOESOPHAGEAL REFLUX DISEASE [None]
  - HEADACHE [None]
  - HIATUS HERNIA [None]
  - INTERVERTEBRAL DISC PROTRUSION [None]
  - ISCHAEMIC CARDIOMYOPATHY [None]
  - MUSCLE SPASMS [None]
  - MYOCARDIAL INFARCTION [None]
  - MYOCARDIAL ISCHAEMIA [None]
  - NECK INJURY [None]
  - NECK PAIN [None]
  - NEUROPATHY PERIPHERAL [None]
  - PAIN IN EXTREMITY [None]
  - PYREXIA [None]
  - ROTATOR CUFF SYNDROME [None]
  - SKIN IRRITATION [None]
  - TENDONITIS [None]
  - URINARY BLADDER POLYP [None]
  - VENTRICULAR EXTRASYSTOLES [None]
